FAERS Safety Report 14120879 (Version 1)
Quarter: 2017Q4

REPORT INFORMATION
  Report Type: Report from Study
  Country: US (occurrence: US)
  Receive Date: 20171024
  Receipt Date: 20171024
  Transmission Date: 20180321
  Serious: Yes (Other)
  Sender: FDA-Public Use
  Company Number: US-BAYER-2017-015140

PATIENT
  Age: 60 Year
  Sex: Female
  Weight: 48.98 kg

DRUGS (11)
  1. ADEMPAS [Suspect]
     Active Substance: RIOCIGUAT
     Indication: PULMONARY ARTERIAL HYPERTENSION
     Dosage: 2.5 MG, TID
     Route: 048
     Dates: start: 20170210
  2. ADEMPAS [Suspect]
     Active Substance: RIOCIGUAT
     Indication: PULMONARY ARTERIAL HYPERTENSION
     Dosage: 2.5 MG, TID
     Route: 048
  3. ADEMPAS [Suspect]
     Active Substance: RIOCIGUAT
     Indication: PULMONARY ARTERIAL HYPERTENSION
     Dosage: 1 MG, TID
     Route: 048
  4. ADEMPAS [Suspect]
     Active Substance: RIOCIGUAT
     Indication: PULMONARY ARTERIAL HYPERTENSION
     Dosage: 2.5 MG, TID
     Route: 048
  5. UPTRAVI [Suspect]
     Active Substance: SELEXIPAG
  6. ADEMPAS [Suspect]
     Active Substance: RIOCIGUAT
     Indication: PULMONARY ARTERIAL HYPERTENSION
     Dosage: 0.5 MG, TID
     Route: 048
  7. LETAIRIS [Concomitant]
     Active Substance: AMBRISENTAN
     Dosage: UNK
  8. ADEMPAS [Suspect]
     Active Substance: RIOCIGUAT
     Indication: PULMONARY ARTERIAL HYPERTENSION
     Dosage: UNK
     Dates: start: 20170111
  9. ADEMPAS [Suspect]
     Active Substance: RIOCIGUAT
     Indication: PULMONARY ARTERIAL HYPERTENSION
     Dosage: UNK
     Dates: start: 20170210
  10. ADEMPAS [Suspect]
     Active Substance: RIOCIGUAT
     Indication: PULMONARY ARTERIAL HYPERTENSION
     Dosage: 1.5 MG, TID
     Route: 048
  11. XARELTO [Concomitant]
     Active Substance: RIVAROXABAN
     Dosage: UNK

REACTIONS (19)
  - Palpitations [Unknown]
  - Pain in jaw [Not Recovered/Not Resolved]
  - Blood pressure systolic decreased [Unknown]
  - Blood pressure decreased [Unknown]
  - Blood pressure decreased [Unknown]
  - Headache [Not Recovered/Not Resolved]
  - Influenza like illness [Not Recovered/Not Resolved]
  - Dyspnoea [None]
  - Myalgia [Unknown]
  - Adverse drug reaction [None]
  - Tooth infection [Unknown]
  - Extra dose administered [None]
  - Fatigue [None]
  - Blood pressure systolic decreased [Unknown]
  - Constipation [None]
  - Dizziness [Recovering/Resolving]
  - Muscle spasms [Not Recovered/Not Resolved]
  - Pain in jaw [None]
  - Pain [Unknown]

NARRATIVE: CASE EVENT DATE: 2017
